FAERS Safety Report 4659128-3 (Version None)
Quarter: 2005Q2

REPORT INFORMATION
  Report Type: 
  Country: None (occurrence: None)
  Receive Date: 20050511
  Receipt Date: 20050503
  Transmission Date: 20051028
  Serious: Yes (Other)
  Sender: FDA-Public Use
  Company Number: 200514040GDDC

PATIENT
  Age: 64 Year
  Sex: Male

DRUGS (13)
  1. LANTUS [Suspect]
     Indication: DIABETES MELLITUS
     Dosage: DOSE UNIT: UNITS
     Route: 058
     Dates: start: 20050307, end: 20050420
  2. ASPIRIN [Concomitant]
     Route: 048
  3. PREDNISOLONE [Concomitant]
     Route: 048
  4. OMEPRAZOLE [Concomitant]
     Route: 048
  5. METFORMIN [Concomitant]
     Route: 048
  6. THIAMINE [Concomitant]
     Route: 048
  7. NICORANDIL [Concomitant]
     Route: 048
  8. ATORVASTATIN CALCIUM [Concomitant]
     Route: 048
  9. AMLODIPINE [Concomitant]
     Route: 048
  10. FRUSEMIDE [Concomitant]
     Route: 048
  11. DOSULEPIN [Concomitant]
     Route: 048
  12. CALCIUM CARBONATE [Concomitant]
     Route: 048
  13. THIAMINE HCL [Concomitant]
     Route: 048

REACTIONS (6)
  - ABNORMAL BEHAVIOUR [None]
  - ANXIETY [None]
  - CONFUSIONAL STATE [None]
  - FACE OEDEMA [None]
  - HALLUCINATION [None]
  - MOOD SWINGS [None]
